FAERS Safety Report 9914686 (Version 3)
Quarter: 2014Q1

REPORT INFORMATION
  Report Type: Report from Study
  Country: CA (occurrence: CA)
  Receive Date: 20140220
  Receipt Date: 20140306
  Transmission Date: 20141002
  Serious: Yes (Hospitalization, Other)
  Sender: FDA-Public Use
  Company Number: PHHY2014CA020519

PATIENT
  Age: 62 Year
  Sex: Male

DRUGS (2)
  1. CLOZARIL [Suspect]
     Indication: SCHIZOPHRENIA
     Dosage: 300 MG, UNK
     Route: 048
     Dates: start: 20140114
  2. LITHIUM [Concomitant]

REACTIONS (4)
  - Urinary tract infection [Recovering/Resolving]
  - Blood creatinine increased [Unknown]
  - Blood potassium increased [Unknown]
  - Blood magnesium increased [Unknown]
